FAERS Safety Report 7170943-7 (Version None)
Quarter: 2010Q4

REPORT INFORMATION
  Report Type: 
  Country: None (occurrence: None)
  Receive Date: 20101123
  Receipt Date: 20100817
  Transmission Date: 20110411
  Serious: No
  Sender: FDA-Public Use
  Company Number: 017398

PATIENT
  Sex: Female
  Weight: 73.5 kg

DRUGS (6)
  1. CIMZIA [Suspect]
     Indication: CROHN'S DISEASE
     Dosage: (400 MG 1X/MONTH SUBCUTANEOUS)
     Route: 058
     Dates: start: 20100701
  2. METHOTREXATE [Concomitant]
  3. PENTASA [Concomitant]
  4. MOBIC [Concomitant]
  5. HYOSCYAMINE [Concomitant]
  6. DEXLANSOPRAZOLE [Concomitant]

REACTIONS (2)
  - CONSTIPATION [None]
  - FURUNCLE [None]
